FAERS Safety Report 21703464 (Version 1)
Quarter: 2022Q4

REPORT INFORMATION
  Report Type: Spontaneous
  Country: FR (occurrence: None)
  Receive Date: 20221209
  Receipt Date: 20221209
  Transmission Date: 20230112
  Serious: Yes (Other)
  Sender: FDA-Public Use
  Company Number: FR-ROCHE-3233118

PATIENT
  Age: 55 Year
  Sex: Female

DRUGS (1)
  1. RIVOTRIL [Suspect]
     Active Substance: CLONAZEPAM
     Indication: Anxiety
     Dosage: 1/2 TABLET PER DAY
     Route: 048
     Dates: start: 2006

REACTIONS (2)
  - Drug use disorder [Recovered/Resolved]
  - Withdrawal syndrome [Unknown]
